FAERS Safety Report 9468534 (Version 1)
Quarter: 2013Q3

REPORT INFORMATION
  Report Type: Spontaneous
  Country: US (occurrence: US)
  Receive Date: 20130821
  Receipt Date: 20130821
  Transmission Date: 20140515
  Serious: Yes (Hospitalization, Other)
  Sender: FDA-Public Use
  Company Number: US-BAYER-2013-099604

PATIENT
  Age: 3 Year
  Sex: Male

DRUGS (2)
  1. HELIXATE FS [Suspect]
     Indication: FACTOR VIII DEFICIENCY
     Dosage: DAILY DOSE 8000 IU
     Dates: start: 20130814
  2. HELIXATE FS [Suspect]
     Indication: HAEMARTHROSIS

REACTIONS (1)
  - Accidental overdose [Unknown]
